FAERS Safety Report 20726507 (Version 1)
Quarter: 2022Q2

REPORT INFORMATION
  Report Type: Spontaneous
  Country: US (occurrence: US)
  Receive Date: 20220419
  Receipt Date: 20220419
  Transmission Date: 20220720
  Serious: Yes (Other)
  Sender: FDA-Public Use
  Company Number: US-MYLANLABS-2022M1028314

PATIENT
  Age: 70 Year
  Sex: Female

DRUGS (9)
  1. PREDNISONE [Suspect]
     Active Substance: PREDNISONE
     Indication: Idiopathic pulmonary fibrosis
     Route: 048
  2. PREDNISONE [Suspect]
     Active Substance: PREDNISONE
     Indication: Immunosuppressant drug therapy
  3. METHOTREXATE [Suspect]
     Active Substance: METHOTREXATE
     Indication: Idiopathic pulmonary fibrosis
     Dosage: 10 MILLIGRAM, QW
     Route: 065
  4. METHOTREXATE [Suspect]
     Active Substance: METHOTREXATE
     Indication: Immunosuppressant drug therapy
  5. OZURDEX [Suspect]
     Active Substance: DEXAMETHASONE
     Indication: Macular oedema
     Dosage: UNK; INTRAVITREAL DEXAMETHASONE IMPLANT INJECTIONS IN THE LEFT EYE; SIX INTRAVITREAL IMPLANTS
     Route: 031
  6. TETRACAINE [Concomitant]
     Active Substance: TETRACAINE
     Indication: Anaesthesia
     Dosage: UNK; APPLIED TO THE LEFT EYE
     Route: 061
  7. LIDOCAINE [Concomitant]
     Active Substance: LIDOCAINE
     Indication: Anaesthesia
     Dosage: UNK; SUBCONJUNCTIVAL INJECTION OF 2% LIDOCAINE SOLUTION GIVEN INFEROTEMPORALLY
     Route: 031
  8. POVIDONE-IODINE [Concomitant]
     Active Substance: POVIDONE-IODINE
     Indication: Prophylaxis
     Dosage: UNK; INSTILLED IN THE INFERIOR CONJUNCTIVAL CUL-DE-SA; HE EYELIDS AND LASHES WERE SWABBED WITH POVID
     Route: 031
  9. SALINE [Concomitant]
     Active Substance: SODIUM CHLORIDE
     Indication: Eye irrigation
     Dosage: UNK; OCULAR SURFACE WAS IRRIGATED
     Route: 065

REACTIONS (3)
  - Bacterial endophthalmitis [Recovering/Resolving]
  - Impaired healing [Recovering/Resolving]
  - Wound complication [Recovering/Resolving]
